FAERS Safety Report 10184944 (Version 1)
Quarter: 2014Q2

REPORT INFORMATION
  Report Type: Spontaneous
  Country: IT (occurrence: IT)
  Receive Date: 20140521
  Receipt Date: 20140521
  Transmission Date: 20141212
  Serious: Yes (Other)
  Sender: FDA-Public Use
  Company Number: IT-MYLANLABS-2014S1010743

PATIENT
  Age: 47 Year
  Sex: Female

DRUGS (1)
  1. DIAZEPAM [Suspect]
     Indication: TENSION HEADACHE
     Dosage: 20 DF TOTAL
     Route: 048
     Dates: start: 20140414, end: 20140414

REACTIONS (2)
  - Dermatitis allergic [Recovering/Resolving]
  - Overdose [Recovering/Resolving]
